FAERS Safety Report 6075955-2 (Version None)
Quarter: 2009Q1

REPORT INFORMATION
  Report Type: 
  Country: None (occurrence: None)
  Receive Date: 20090209
  Receipt Date: 20090128
  Transmission Date: 20090719
  Serious: Yes (Other)
  Sender: FDA-Public Use
  Company Number: 2008AP003027

PATIENT
  Age: 49 Year
  Sex: Male

DRUGS (2)
  1. ALENDRONATE SODIUM [Suspect]
     Dosage: UNKNOWN;PO;UNKNOWN
     Route: 048
  2. INSULIN (INSULIN) [Concomitant]

REACTIONS (4)
  - CANDIDIASIS [None]
  - DYSPHAGIA [None]
  - TONGUE ULCERATION [None]
  - WRONG TECHNIQUE IN DRUG USAGE PROCESS [None]
